FAERS Safety Report 17875950 (Version 1)
Quarter: 2020Q2

REPORT INFORMATION
  Report Type: Spontaneous
  Country: ES (occurrence: ES)
  Receive Date: 20200609
  Receipt Date: 20200609
  Transmission Date: 20200714
  Serious: Yes (Hospitalization)
  Sender: FDA-Public Use
  Company Number: ES-TEVA-2020-ES-1246128

PATIENT
  Age: 60 Year
  Sex: Male

DRUGS (4)
  1. DEXAMETASONA 4 MG COMPRIMIDO [Suspect]
     Active Substance: DEXAMETHASONE
     Indication: PNEUMONITIS
     Route: 048
     Dates: start: 20200408, end: 20200428
  2. ORFIDAL 1 MG COMPRIMIDOS, 50 COMPRIMIDOS [Concomitant]
     Active Substance: LORAZEPAM
     Dosage: 1 MILLIGRAM DAILY; 0-0-0-1
     Dates: start: 20190828
  3. AMOXICILINA/ACIDO CLAVULANICO 875 MG/125 MG COMPRIMIDO [Suspect]
     Active Substance: AMOXICILLIN\CLAVULANATE POTASSIUM
     Dosage: 1 DOSAGE FORMS
     Route: 048
     Dates: start: 20200405, end: 20200414
  4. DURVALUMAB (9421A) [Suspect]
     Active Substance: DURVALUMAB
     Indication: LUNG ADENOCARCINOMA STAGE III
     Dosage: 10 MG / KG, 750 MG EVERY TWO WEEKS
     Route: 042
     Dates: start: 20200226, end: 20200411

REACTIONS (1)
  - Pancreatitis acute [Recovering/Resolving]

NARRATIVE: CASE EVENT DATE: 20200521
